FAERS Safety Report 10200302 (Version 1)
Quarter: 2014Q2

REPORT INFORMATION
  Report Type: Spontaneous
  Country: US (occurrence: US)
  Receive Date: 20140527
  Receipt Date: 20140527
  Transmission Date: 20141212
  Serious: No
  Sender: FDA-Public Use
  Company Number: US-009507513-1404USA011826

PATIENT
  Sex: Female

DRUGS (3)
  1. MIRALAX [Suspect]
     Indication: CONSTIPATION
     Dosage: 17 G, ONCE
     Route: 048
  2. MIRALAX [Suspect]
     Dosage: UNK, UNKNOWN
     Route: 048
  3. SENOKOT (SENNA) [Suspect]
     Indication: CONSTIPATION
     Dosage: UNK, UNKNOWN

REACTIONS (3)
  - Diarrhoea [Unknown]
  - Underdose [Unknown]
  - Drug effect decreased [Unknown]
